FAERS Safety Report 9098069 (Version 1)
Quarter: 2013Q1

REPORT INFORMATION
  Report Type: Spontaneous
  Country: AU (occurrence: AU)
  Receive Date: 20130212
  Receipt Date: 20130212
  Transmission Date: 20140127
  Serious: Yes (Other)
  Sender: FDA-Public Use
  Company Number: AU-ROCHE-1189806

PATIENT
  Age: 52 Year
  Sex: Female

DRUGS (2)
  1. HERCEPTIN [Suspect]
     Indication: BREAST NEOPLASM
     Route: 065
  2. NAB-PACLITAXEL [Concomitant]
     Indication: BREAST NEOPLASM

REACTIONS (1)
  - Disease progression [Unknown]
